FAERS Safety Report 7089266-X (Version None)
Quarter: 2010Q4

REPORT INFORMATION
  Report Type: 
  Country: None (occurrence: None)
  Receive Date: 20101108
  Receipt Date: 20101104
  Transmission Date: 20110411
  Serious: Yes (Other)
  Sender: FDA-Public Use
  Company Number: BR-PFIZER INC-2010133871

PATIENT
  Age: 59 Year
  Sex: Female
  Weight: 65 kg

DRUGS (6)
  1. CHAMPIX [Suspect]
     Indication: TOBACCO USER
     Dosage: 1 MG, 2X/DAY
     Route: 048
     Dates: start: 20101011
  2. LEVOTHYROXINE SODIUM [Concomitant]
     Indication: THYROID DISORDER
     Dosage: UNK
  3. CALTRATE [Concomitant]
     Indication: MINERAL SUPPLEMENTATION
     Dosage: UNK
  4. RIVOTRIL [Concomitant]
     Indication: ANXIETY
     Dosage: UNK
  5. RIVOTRIL [Concomitant]
     Indication: SLEEP DISORDER
  6. SIMVASTATIN [Concomitant]
     Indication: BLOOD CHOLESTEROL
     Dosage: UNK

REACTIONS (4)
  - AGGRESSION [None]
  - ANXIETY [None]
  - DYSPNOEA [None]
  - NERVOUSNESS [None]
